FAERS Safety Report 8250591-8 (Version None)
Quarter: 2012Q2

REPORT INFORMATION
  Report Type: 
  Country: None (occurrence: None)
  Receive Date: 20120402
  Receipt Date: 20120326
  Transmission Date: 20120825
  Serious: Yes (Hospitalization)
  Sender: FDA-Public Use
  Company Number: US-B.I. PHARMACEUTICALS,INC./RIDGEFIELD-2012-EU-01745GD

PATIENT
  Sex: Male

DRUGS (1)
  1. DABIGATRAN [Suspect]
     Dosage: STRENGTH:150MG/ML; DAILY DOSE:300MG/ML
     Route: 048

REACTIONS (2)
  - HEAD INJURY [None]
  - TRAUMATIC HAEMORRHAGE [None]
